FAERS Safety Report 9178277 (Version 1)
Quarter: 2012Q4

REPORT INFORMATION
  Report Type: 
  Country: US (occurrence: US)
  Receive Date: 20121029
  Receipt Date: 20121029
  Transmission Date: 20130627
  Serious: Yes (Other)
  Sender: FDA-Public Use
  Company Number: US-PFIZER INC-2012269370

PATIENT
  Age: 66 Year
  Sex: Female
  Weight: 78.91 kg

DRUGS (2)
  1. LYRICA [Suspect]
     Indication: FIBROMYALGIA
     Dosage: UNK, 2x/day
     Route: 048
  2. PRAVASTATIN [Concomitant]
     Indication: BLOOD PRESSURE HIGH
     Dosage: UNK, daily

REACTIONS (2)
  - Amnesia [Not Recovered/Not Resolved]
  - Pain [Recovering/Resolving]
